FAERS Safety Report 8541310-6 (Version None)
Quarter: 2012Q3

REPORT INFORMATION
  Report Type: 
  Country: None (occurrence: None)
  Receive Date: 20120726
  Receipt Date: 20120723
  Transmission Date: 20120928
  Serious: No
  Sender: FDA-Public Use
  Company Number: US-PFIZER INC-2012178437

PATIENT
  Sex: Male
  Weight: 70.748 kg

DRUGS (3)
  1. CHANTIX [Suspect]
     Indication: SMOKING CESSATION THERAPY
     Dosage: 0.5 MG, 1X/DAY
     Route: 048
     Dates: start: 20120714
  2. CHANTIX [Suspect]
     Dosage: 0.5 MG, 2X/DAY
     Dates: end: 20120721
  3. PLAVIX [Concomitant]
     Dosage: UNK

REACTIONS (1)
  - TOBACCO USER [None]
